FAERS Safety Report 7500769-3 (Version None)
Quarter: 2011Q2

REPORT INFORMATION
  Report Type: 
  Country: None (occurrence: None)
  Receive Date: 20110524
  Receipt Date: 20110512
  Transmission Date: 20111010
  Serious: Yes (Disabling)
  Sender: FDA-Public Use
  Company Number: PHHY2011BE24189

PATIENT
  Age: 53 Year
  Sex: Male

DRUGS (7)
  1. CYCLOSPORINE [Concomitant]
  2. CERTICAN [Suspect]
  3. LIPITOR [Concomitant]
     Dosage: 40 MG, QD
     Dates: start: 20090301
  4. NOBITEN [Concomitant]
     Dosage: 5 MG, QD
  5. ANTIHYPERTENSIVES [Concomitant]
  6. HYDRALAZINE HCL [Concomitant]
     Dosage: 25 MG, BID
  7. HYTRIN [Concomitant]
     Dosage: 10 MG, QD

REACTIONS (2)
  - BLINDNESS [None]
  - MACULAR DEGENERATION [None]
